FAERS Safety Report 8435572-3 (Version None)
Quarter: 2012Q2

REPORT INFORMATION
  Report Type: 
  Country: None (occurrence: None)
  Receive Date: 20120608
  Receipt Date: 20120523
  Transmission Date: 20120825
  Serious: Yes (Hospitalization)
  Sender: FDA-Public Use
  Company Number: 2012SP028152

PATIENT
  Age: 66 Year
  Sex: Male

DRUGS (2)
  1. ONCOTICE [Suspect]
     Indication: BLADDER TRANSITIONAL CELL CARCINOMA
     Dosage: INVES
  2. IMMUCYST [Suspect]
     Indication: BLADDER TRANSITIONAL CELL CARCINOMA
     Dosage: INVES

REACTIONS (4)
  - ACUTE RESPIRATORY FAILURE [None]
  - PNEUMONIA [None]
  - BOVINE TUBERCULOSIS [None]
  - DYSURIA [None]
